FAERS Safety Report 18971427 (Version 1)
Quarter: 2021Q1

REPORT INFORMATION
  Report Type: Spontaneous
  Country: DE (occurrence: DE)
  Receive Date: 20210305
  Receipt Date: 20210305
  Transmission Date: 20210420
  Serious: Yes (Other)
  Sender: FDA-Public Use
  Company Number: DE-UCBSA-2020054772

PATIENT
  Age: 16 Year
  Sex: Male
  Weight: 63.8 kg

DRUGS (1)
  1. KEPPRA [Suspect]
     Active Substance: LEVETIRACETAM
     Indication: EPILEPSY
     Dosage: 750 MILLIGRAM, 2X/DAY (BID)
     Dates: start: 201706

REACTIONS (8)
  - Seizure [Unknown]
  - Psychogenic seizure [Unknown]
  - Insomnia [Recovered/Resolved]
  - Dissociative disorder [Recovered/Resolved]
  - Tremor [Recovered/Resolved]
  - Micturition urgency [Unknown]
  - Muscle spasms [Unknown]
  - Abdominal pain [Unknown]

NARRATIVE: CASE EVENT DATE: 2020
